FAERS Safety Report 15813116 (Version 4)
Quarter: 2020Q4

REPORT INFORMATION
  Report Type: Spontaneous
  Country: US (occurrence: US)
  Receive Date: 20190111
  Receipt Date: 20201214
  Transmission Date: 20210113
  Serious: Yes (Hospitalization, Other)
  Sender: FDA-Public Use
  Company Number: US-SA-2019SA007033

PATIENT

DRUGS (19)
  1. VALACYCLOVIR [Concomitant]
     Active Substance: VALACYCLOVIR HYDROCHLORIDE
  2. GABAPENTIN. [Concomitant]
     Active Substance: GABAPENTIN
  3. MONTELUKAST [Concomitant]
     Active Substance: MONTELUKAST SODIUM
  4. ANASTROZOLE. [Concomitant]
     Active Substance: ANASTROZOLE
  5. GENERLAC [Concomitant]
     Active Substance: LACTULOSE
  6. DESOXIMETASONE. [Concomitant]
     Active Substance: DESOXIMETASONE
  7. TIZANIDINE. [Concomitant]
     Active Substance: TIZANIDINE
  8. ADVAIR HFA [Concomitant]
     Active Substance: FLUTICASONE PROPIONATE\SALMETEROL XINAFOATE
  9. BUPROPION. [Concomitant]
     Active Substance: BUPROPION
  10. CETRIZINE [Concomitant]
     Active Substance: CETIRIZINE HYDROCHLORIDE
  11. NEXIUM I.V. [Concomitant]
     Active Substance: ESOMEPRAZOLE SODIUM
  12. OXYCODONE [Concomitant]
     Active Substance: OXYCODONE
  13. QUETIAPINE. [Concomitant]
     Active Substance: QUETIAPINE
  14. URSODIOL. [Concomitant]
     Active Substance: URSODIOL
  15. DUPIXENT [Suspect]
     Active Substance: DUPILUMAB
     Dosage: 300 MG, QOW
     Route: 058
     Dates: start: 2020
  16. TRIAMCINOLONE [Concomitant]
     Active Substance: TRIAMCINOLONE
  17. DUPIXENT [Suspect]
     Active Substance: DUPILUMAB
     Indication: DERMATITIS ATOPIC
     Dosage: 300 MG, QOW
     Route: 058
     Dates: start: 20180925
  18. CLONAZEPAM. [Concomitant]
     Active Substance: CLONAZEPAM
  19. NYSTOP [Concomitant]
     Active Substance: NYSTATIN

REACTIONS (8)
  - Skin discolouration [Not Recovered/Not Resolved]
  - Eye pruritus [Not Recovered/Not Resolved]
  - Loss of consciousness [Not Recovered/Not Resolved]
  - Rash pruritic [Not Recovered/Not Resolved]
  - Lacrimation increased [Not Recovered/Not Resolved]
  - Wheezing [Not Recovered/Not Resolved]
  - Dry eye [Not Recovered/Not Resolved]
  - Dry skin [Not Recovered/Not Resolved]

NARRATIVE: CASE EVENT DATE: 20190103
